FAERS Safety Report 7943985-9 (Version None)
Quarter: 2011Q4

REPORT INFORMATION
  Report Type: 
  Country: None (occurrence: None)
  Receive Date: 20111128
  Receipt Date: 20111115
  Transmission Date: 20120403
  Serious: Yes (Other)
  Sender: FDA-Public Use
  Company Number: US-RB-034995-11

PATIENT
  Age: 29 Year
  Sex: Female

DRUGS (3)
  1. ATIVAN [Concomitant]
     Indication: CONVULSION
     Dosage: DOSING INFORMATION UNKNOWN
     Route: 065
     Dates: start: 20110101
  2. SUBUTEX [Suspect]
     Indication: DRUG DEPENDENCE
     Dosage: DOSING INFORMATION UNKNOWN
     Route: 065
     Dates: start: 20110101
  3. ADDERALL 5 [Concomitant]
     Indication: PRODUCT USED FOR UNKNOWN INDICATION
     Dosage: DOSING INFORMATION UNKNOWN
     Route: 065
     Dates: start: 20110101

REACTIONS (4)
  - FALL [None]
  - MATERNAL EXPOSURE DURING PREGNANCY [None]
  - SYNCOPE [None]
  - ANKLE FRACTURE [None]
